FAERS Safety Report 21095172 (Version 1)
Quarter: 2022Q3

REPORT INFORMATION
  Report Type: Spontaneous
  Country: CN (occurrence: CN)
  Receive Date: 20220718
  Receipt Date: 20220718
  Transmission Date: 20221026
  Serious: Yes (Hospitalization, Other)
  Sender: FDA-Public Use
  Company Number: CN-PFIZER INC-PV202200022369

PATIENT
  Age: 38 Year
  Sex: Male

DRUGS (2)
  1. VENLAFAXINE HYDROCHLORIDE [Suspect]
     Active Substance: VENLAFAXINE HYDROCHLORIDE
     Indication: Depression
     Dosage: 225 MG, 1X/DAY
     Route: 048
     Dates: start: 20220411, end: 20220628
  2. HERBALS [Suspect]
     Active Substance: HERBALS
     Indication: Nervousness
     Dosage: 3 CAPSULES, 3X/DAY
     Route: 048
     Dates: start: 20220411, end: 20220628

REACTIONS (5)
  - Transaminases increased [Recovering/Resolving]
  - Blood bilirubin increased [Recovering/Resolving]
  - Total bile acids increased [Recovering/Resolving]
  - Drug-induced liver injury [Recovering/Resolving]
  - Cholestasis [Recovering/Resolving]

NARRATIVE: CASE EVENT DATE: 20220601
